FAERS Safety Report 8949502 (Version 2)
Quarter: 2012Q4

REPORT INFORMATION
  Report Type: 
  Country: JP (occurrence: JP)
  Receive Date: 20121206
  Receipt Date: 20121227
  Transmission Date: 20130627
  Serious: Yes (Other)
  Sender: FDA-Public Use
  Company Number: JP-PFIZER INC-2012303669

PATIENT

DRUGS (1)
  1. UNASYN-S [Suspect]
     Indication: PNEUMONIA
     Dosage: 1.5 g, 4x/day

REACTIONS (1)
  - Cardiac failure [Unknown]
